FAERS Safety Report 25592075 (Version 1)
Quarter: 2025Q3

REPORT INFORMATION
  Report Type: Spontaneous
  Country: BR (occurrence: BR)
  Receive Date: 20250722
  Receipt Date: 20250722
  Transmission Date: 20251020
  Serious: Yes (Other)
  Sender: INCYTE
  Company Number: BR-002147023-NVSC2025BR115003

PATIENT
  Age: 62 Year

DRUGS (1)
  1. RUXOLITINIB [Suspect]
     Active Substance: RUXOLITINIB
     Indication: Primary myelofibrosis
     Dosage: 20 MG, BID
     Route: 065

REACTIONS (3)
  - Ascites [Unknown]
  - Thrombocytopenia [Unknown]
  - Anaemia [Recovering/Resolving]
